FAERS Safety Report 7934140-7 (Version None)
Quarter: 2011Q4

REPORT INFORMATION
  Report Type: 
  Country: None (occurrence: None)
  Receive Date: 20111122
  Receipt Date: 20111116
  Transmission Date: 20120403
  Serious: Yes (Other)
  Sender: FDA-Public Use
  Company Number: FR-BAXTER-2011BH025909

PATIENT
  Age: 65 Year
  Sex: Female

DRUGS (10)
  1. CYCLOPHOSPHAMIDE [Suspect]
     Route: 042
     Dates: start: 20110609, end: 20110609
  2. EMEND [Suspect]
     Route: 048
     Dates: start: 20110610, end: 20110611
  3. CYCLOPHOSPHAMIDE [Suspect]
     Route: 042
     Dates: start: 20110519, end: 20110519
  4. DOCETAXEL [Suspect]
     Route: 042
     Dates: start: 20110519, end: 20110519
  5. ZOFRAN [Concomitant]
     Indication: PRODUCT USED FOR UNKNOWN INDICATION
     Route: 065
  6. EMEND [Suspect]
     Indication: BREAST CANCER
     Route: 048
     Dates: start: 20110609, end: 20110609
  7. PRIMPERAN TAB [Concomitant]
     Indication: PRODUCT USED FOR UNKNOWN INDICATION
     Route: 042
     Dates: start: 20110428, end: 20110609
  8. CYCLOPHOSPHAMIDE [Suspect]
     Indication: BREAST CANCER
     Route: 042
     Dates: start: 20110428, end: 20110428
  9. DOCETAXEL [Suspect]
     Indication: BREAST CANCER
     Route: 042
     Dates: start: 20110428, end: 20110428
  10. DOCETAXEL [Suspect]
     Route: 042
     Dates: start: 20110609, end: 20110609

REACTIONS (8)
  - HEPATIC NEOPLASM MALIGNANT [None]
  - RASH [None]
  - NEUTROPENIA [None]
  - MUCOSAL INFLAMMATION [None]
  - PARAESTHESIA [None]
  - ASTHENIA [None]
  - DECREASED APPETITE [None]
  - MUSCULAR WEAKNESS [None]
